FAERS Safety Report 6395313-0 (Version None)
Quarter: 2009Q4

REPORT INFORMATION
  Report Type: 
  Country: None (occurrence: None)
  Receive Date: 20091009
  Receipt Date: 20091006
  Transmission Date: 20100525
  Serious: Yes (Hospitalization)
  Sender: FDA-Public Use
  Company Number: B0500153A

PATIENT
  Sex: Female
  Weight: 20.3 kg

DRUGS (5)
  1. COMBIVIR [Suspect]
     Indication: HIV INFECTION
     Route: 065
     Dates: start: 20071025, end: 20071207
  2. LAMIVUDINE [Suspect]
     Indication: HIV INFECTION
     Route: 065
     Dates: start: 20071207
  3. ABACAVIR [Suspect]
     Indication: HIV INFECTION
     Dosage: 450MG PER DAY
     Route: 065
     Dates: start: 20071025
  4. NEVIRAPINE [Suspect]
     Indication: HIV INFECTION
     Dosage: 200MG TWICE PER DAY
     Route: 065
     Dates: start: 20071025
  5. COTRIM [Concomitant]
     Dates: start: 20070815

REACTIONS (2)
  - ANAEMIA [None]
  - ASTHENIA [None]
